FAERS Safety Report 8459946-X (Version None)
Quarter: 2012Q2

REPORT INFORMATION
  Report Type: 
  Country: None (occurrence: None)
  Receive Date: 20120622
  Receipt Date: 20120620
  Transmission Date: 20120825
  Serious: Yes (Other)
  Sender: FDA-Public Use
  Company Number: PHHY2012ES053170

PATIENT
  Age: 64 Year
  Sex: Female

DRUGS (1)
  1. TASIGNA [Suspect]

REACTIONS (3)
  - VOMITING [None]
  - ELECTROCARDIOGRAM QT PROLONGED [None]
  - LIPASE INCREASED [None]
